FAERS Safety Report 20040232 (Version 1)
Quarter: 2021Q4

REPORT INFORMATION
  Report Type: Spontaneous
  Country: CL (occurrence: CL)
  Receive Date: 20211106
  Receipt Date: 20211106
  Transmission Date: 20220303
  Serious: Yes (Other)
  Sender: FDA-Public Use
  Company Number: CL-NOVARTISPH-NVSC2021CL241512

PATIENT
  Age: 38 Year
  Sex: Female

DRUGS (2)
  1. DICLOFENAC [Suspect]
     Active Substance: DICLOFENAC
     Indication: Product used for unknown indication
     Dosage: UNK
     Route: 065
  2. AMITRIPTYLINE [Suspect]
     Active Substance: AMITRIPTYLINE
     Indication: Product used for unknown indication
     Dosage: UNK, PATIENT TOOK ABOUT A MONTH
     Route: 065

REACTIONS (7)
  - Seizure [Recovered/Resolved]
  - Swelling of eyelid [Unknown]
  - Overweight [Unknown]
  - Migraine [Unknown]
  - Headache [Recovering/Resolving]
  - Nausea [Unknown]
  - Insomnia [Unknown]
